FAERS Safety Report 5638652-0 (Version None)
Quarter: 2008Q1

REPORT INFORMATION
  Report Type: 
  Country: None (occurrence: None)
  Receive Date: 20080226
  Receipt Date: 20070814
  Transmission Date: 20080703
  Serious: No
  Sender: FDA-Public Use
  Company Number: A0670178A

PATIENT
  Age: 20 Year
  Sex: Female

DRUGS (2)
  1. IMITREX [Suspect]
     Indication: MIGRAINE
     Dosage: 6MG UNKNOWN
     Route: 058
     Dates: start: 20070101, end: 20070101
  2. ANTIHYPERTENSIVES [Concomitant]

REACTIONS (5)
  - DYSPNOEA [None]
  - EYE SWELLING [None]
  - JOINT SWELLING [None]
  - PHARYNGOLARYNGEAL DISCOMFORT [None]
  - SWELLING FACE [None]
